FAERS Safety Report 7500747-4 (Version None)
Quarter: 2011Q2

REPORT INFORMATION
  Report Type: 
  Country: None (occurrence: None)
  Receive Date: 20110524
  Receipt Date: 20110519
  Transmission Date: 20111010
  Serious: Yes (Disabling, Other)
  Sender: FDA-Public Use
  Company Number: NL-ABBOTT-11P-114-0721119-00

PATIENT
  Sex: Female

DRUGS (3)
  1. ATROPINE [Concomitant]
     Indication: PRODUCT USED FOR UNKNOWN INDICATION
     Route: 047
     Dates: start: 20040101
  2. PREDNISOLONE [Concomitant]
     Indication: PRODUCT USED FOR UNKNOWN INDICATION
     Dosage: 10MG/ML FLACON 5ML(OLD) 1UNIT TWICE DAILTWICE DAI
     Dates: start: 20040101
  3. HUMIRA [Suspect]
     Indication: UVEITIS
     Route: 058
     Dates: start: 20101103

REACTIONS (2)
  - ARTHROPATHY [None]
  - THROMBOSIS [None]
